FAERS Safety Report 21943292 (Version 1)
Quarter: 2023Q1

REPORT INFORMATION
  Report Type: Spontaneous
  Country: US (occurrence: US)
  Receive Date: 20230202
  Receipt Date: 20230202
  Transmission Date: 20230417
  Serious: Yes (Other)
  Sender: FDA-Public Use
  Company Number: US-ORGANON-O2301USA002682

PATIENT
  Age: 31 Year
  Sex: Female
  Weight: 122.9 kg

DRUGS (1)
  1. NEXPLANON [Suspect]
     Active Substance: ETONOGESTREL
     Dosage: 1 ROD OF 68 MG ONCE IN LEFT ARM
     Route: 059
     Dates: start: 20230110, end: 202301

REACTIONS (2)
  - Device expulsion [Recovered/Resolved]
  - Medical device site discomfort [Unknown]

NARRATIVE: CASE EVENT DATE: 20230101
